FAERS Safety Report 23910381 (Version 1)
Quarter: 2024Q2

REPORT INFORMATION
  Report Type: Spontaneous
  Country: US (occurrence: US)
  Receive Date: 20240528
  Receipt Date: 20240528
  Transmission Date: 20240716
  Serious: No
  Sender: FDA-Public Use
  Company Number: US-AVADEL CNS PHARMACEUTICALS, LLC-2024AVA00626

PATIENT
  Sex: Male

DRUGS (11)
  1. LUMRYZ [Suspect]
     Active Substance: SODIUM OXYBATE
     Indication: Hypersomnia
     Dosage: 9 G, ONCE NIGHTLY
     Dates: start: 2024
  2. ADDERALL [Concomitant]
     Active Substance: AMPHETAMINE ASPARTATE\AMPHETAMINE SULFATE\DEXTROAMPHETAMINE SACCHARATE\DEXTROAMPHETAMINE SULFATE
     Dosage: UNK, MORNING
  3. LISINOPRIL [Concomitant]
     Active Substance: LISINOPRIL
     Dosage: UNK
  4. WEGOVY [Concomitant]
     Active Substance: SEMAGLUTIDE
  5. METFORMIN [Concomitant]
     Active Substance: METFORMIN HYDROCHLORIDE
  6. JARDIANCE [Concomitant]
     Active Substance: EMPAGLIFLOZIN
  7. FINASTERIDE [Concomitant]
     Active Substance: FINASTERIDE
  8. TESTOSTERONE [Concomitant]
     Active Substance: TESTOSTERONE
  9. LATUDA [Concomitant]
     Active Substance: LURASIDONE HYDROCHLORIDE
  10. TRINTELLIX [Concomitant]
     Active Substance: VORTIOXETINE HYDROBROMIDE
  11. LAMICTAL [Concomitant]
     Active Substance: LAMOTRIGINE
     Dosage: UNK

REACTIONS (6)
  - Initial insomnia [Not Recovered/Not Resolved]
  - Middle insomnia [Not Recovered/Not Resolved]
  - Somnolence [Not Recovered/Not Resolved]
  - Disorientation [Not Recovered/Not Resolved]
  - Drug effect less than expected [Recovering/Resolving]
  - Off label use [Not Recovered/Not Resolved]

NARRATIVE: CASE EVENT DATE: 20240101
